FAERS Safety Report 17663224 (Version 1)
Quarter: 2020Q2

REPORT INFORMATION
  Report Type: Spontaneous
  Country: FR (occurrence: FR)
  Receive Date: 20200413
  Receipt Date: 20200413
  Transmission Date: 20200713
  Serious: Yes (Other)
  Sender: FDA-Public Use
  Company Number: FR-ADVANZ PHARMA-202003002823

PATIENT

DRUGS (2)
  1. NIVAQUINE [Suspect]
     Active Substance: CHLOROQUINE
     Indication: SYSTEMIC LUPUS ERYTHEMATOSUS
     Dosage: 1 DOSAGE FORM, QD
     Route: 065
     Dates: start: 1987
  2. HYDROXYCHLOROQUINE SULFATE (AUTHORIZED GENERIC),PLAQUENIL [Suspect]
     Active Substance: HYDROXYCHLOROQUINE SULFATE
     Indication: SYSTEMIC LUPUS ERYTHEMATOSUS
     Dosage: UNK
     Route: 065

REACTIONS (1)
  - Angioedema [Unknown]
